FAERS Safety Report 5943880-0 (Version None)
Quarter: 2008Q4

REPORT INFORMATION
  Report Type: 
  Country: None (occurrence: None)
  Receive Date: 20081106
  Receipt Date: 20081104
  Transmission Date: 20090506
  Serious: Yes (Other)
  Sender: FDA-Public Use
  Company Number: HQWYE120812SEP07

PATIENT
  Sex: Female

DRUGS (3)
  1. PREMPRO [Suspect]
  2. PROVERA [Suspect]
  3. PREMARIN [Suspect]

REACTIONS (1)
  - BREAST CANCER METASTATIC [None]
